FAERS Safety Report 12626828 (Version 3)
Quarter: 2016Q4

REPORT INFORMATION
  Report Type: Spontaneous
  Country: JP (occurrence: JP)
  Receive Date: 20160805
  Receipt Date: 20161116
  Transmission Date: 20170207
  Serious: Yes (Hospitalization, Disabling, Other)
  Sender: FDA-Public Use
  Company Number: JP-009507513-1608JPN003225

PATIENT
  Age: 83 Year
  Sex: Female

DRUGS (15)
  1. RESTAMIN (DIPHENHYDRAMINE HYDROCHLORIDE) [Concomitant]
     Active Substance: DIPHENHYDRAMINE HYDROCHLORIDE
     Dosage: UNK
     Dates: start: 20160122
  2. JANUVIA [Suspect]
     Active Substance: SITAGLIPTIN PHOSPHATE
     Dosage: 50 MG, ONCE A DAY
     Route: 048
     Dates: start: 20160330, end: 20160719
  3. PREDONINE [Suspect]
     Active Substance: PREDNISOLONE\PREDNISOLONE ACETATE\PREDNISOLONE SODIUM SUCCINATE
     Dosage: 30 MG, PER DAY
     Route: 048
     Dates: start: 20160309
  4. XYZAL [Concomitant]
     Active Substance: LEVOCETIRIZINE DIHYDROCHLORIDE
     Dosage: 5 MG, ONCE A DAY
     Dates: start: 20160205, end: 20160219
  5. SULBACILLIN [Concomitant]
     Active Substance: AMPICILLIN SODIUM\SULBACTAM SODIUM
     Dosage: 3 G, TWICE A DAY
     Dates: start: 20160216, end: 20160219
  6. FASTIC [Concomitant]
     Active Substance: NATEGLINIDE
     Dosage: 90 MG, 3 TIMES A DAY
     Dates: start: 20160314
  7. PREDONINE [Suspect]
     Active Substance: PREDNISOLONE\PREDNISOLONE ACETATE\PREDNISOLONE SODIUM SUCCINATE
     Indication: PRODUCT USED FOR UNKNOWN INDICATION
     Dosage: UNK
     Route: 048
     Dates: start: 2016, end: 20160308
  8. SAWACILLIN [Concomitant]
     Active Substance: AMOXICILLIN
     Dosage: 250 MG, 3 TIMES A DAY
     Dates: start: 20160205, end: 20160212
  9. MEIACT [Concomitant]
     Active Substance: CEFDITOREN PIVOXIL
     Dosage: UNK
     Dates: start: 20160122, end: 20160128
  10. GLACTIV [Suspect]
     Active Substance: SITAGLIPTIN
     Indication: TYPE 2 DIABETES MELLITUS
     Dosage: 25 MG, ONCE A DAY
     Route: 048
     Dates: start: 20160114, end: 20160315
  11. CRAVIT [Concomitant]
     Active Substance: LEVOFLOXACIN
     Dosage: UNK
     Dates: start: 20160314, end: 20160315
  12. TRESIBA [Concomitant]
     Active Substance: INSULIN DEGLUDEC
     Dosage: 10 IU, UNK
     Dates: start: 20160314, end: 20160329
  13. OPALMON [Concomitant]
     Active Substance: LIMAPROST
     Dosage: 15 MICROGRAM, DAILY
     Route: 048
     Dates: start: 20160601
  14. MAGLAX (MAGNESIUM OXIDE) [Concomitant]
     Active Substance: MAGNESIUM OXIDE
     Dosage: UNK
     Dates: end: 20130531
  15. TRESIBA [Concomitant]
     Active Substance: INSULIN DEGLUDEC
     Dosage: 4 IU, UNK
     Dates: start: 20160330, end: 20160718

REACTIONS (3)
  - Extremity necrosis [Recovered/Resolved]
  - Pemphigoid [Recovered/Resolved with Sequelae]
  - Urinary tract infection [Recovered/Resolved]

NARRATIVE: CASE EVENT DATE: 20160122
